FAERS Safety Report 16639214 (Version 2)
Quarter: 2019Q3

REPORT INFORMATION
  Report Type: Spontaneous
  Country: DK (occurrence: DK)
  Receive Date: 20190726
  Receipt Date: 20190803
  Transmission Date: 20191004
  Serious: Yes (Disabling)
  Sender: FDA-Public Use
  Company Number: PHHY2019DK169731

PATIENT
  Age: 64 Year
  Sex: Male

DRUGS (2)
  1. DEPO-MEDROL [Concomitant]
     Active Substance: METHYLPREDNISOLONE ACETATE
     Indication: PSORIATIC ARTHROPATHY
     Dosage: UNK(STYRKE: 40 MG/ML. DOSIS: 1 ML.)
     Route: 065
  2. METHOTREXATE. [Suspect]
     Active Substance: METHOTREXATE
     Indication: PSORIATIC ARTHROPATHY
     Dosage: 30 MG, QW(STYRKE 2.5 MG)
     Route: 048
     Dates: start: 20120927, end: 20170110

REACTIONS (6)
  - Total lung capacity decreased [Not Recovered/Not Resolved]
  - Pulmonary hypertension [Unknown]
  - Pneumonitis [Recovered/Resolved with Sequelae]
  - Pulmonary fibrosis [Not Recovered/Not Resolved]
  - Dyspnoea exertional [Unknown]
  - Cough [Unknown]

NARRATIVE: CASE EVENT DATE: 2013
